FAERS Safety Report 6958609-7 (Version None)
Quarter: 2010Q3

REPORT INFORMATION
  Report Type: 
  Country: None (occurrence: None)
  Receive Date: 20100827
  Receipt Date: 20100827
  Transmission Date: 20110219
  Serious: Yes (Hospitalization)
  Sender: FDA-Public Use
  Company Number: None

PATIENT
  Sex: Male
  Weight: 88.4514 kg

DRUGS (1)
  1. SUBOXONE [Suspect]
     Dosage: SEE ATTACHED LETTER

REACTIONS (13)
  - ANXIETY [None]
  - CONFUSIONAL STATE [None]
  - DECREASED APPETITE [None]
  - DEPRESSION [None]
  - DRUG ABUSE [None]
  - FALL [None]
  - FATIGUE [None]
  - INSOMNIA [None]
  - MEMORY IMPAIRMENT [None]
  - OEDEMA [None]
  - SCHIZOPHRENIA [None]
  - STARING [None]
  - WEIGHT DECREASED [None]
